FAERS Safety Report 15284156 (Version 2)
Quarter: 2018Q4

REPORT INFORMATION
  Report Type: Report from Study
  Country: AR (occurrence: AR)
  Receive Date: 20180816
  Receipt Date: 20181026
  Transmission Date: 20190204
  Serious: Yes (Hospitalization)
  Sender: FDA-Public Use
  Company Number: AR-BAYER-2018-148810

PATIENT
  Age: 47 Year
  Sex: Male

DRUGS (1)
  1. ADEMPAS [Suspect]
     Active Substance: RIOCIGUAT
     Indication: PULMONARY HYPERTENSION
     Dosage: 2.5 MG, TID
     Route: 048
     Dates: start: 20170102

REACTIONS (8)
  - Dehydration [Not Recovered/Not Resolved]
  - Syncope [Recovered/Resolved]
  - Weight decreased [None]
  - Vomiting [Unknown]
  - Malnutrition [Unknown]
  - Fluid retention [None]
  - Fluid retention [None]
  - Malnutrition [Unknown]

NARRATIVE: CASE EVENT DATE: 201711
